FAERS Safety Report 9376737 (Version 6)
Quarter: 2014Q1

REPORT INFORMATION
  Report Type: Spontaneous
  Country: US (occurrence: US)
  Receive Date: 20130701
  Receipt Date: 20140219
  Transmission Date: 20141002
  Serious: Yes (Hospitalization, Congenital Anomaly, Other)
  Sender: FDA-Public Use
  Company Number: US-JNJFOC-20130616400

PATIENT
  Sex: Male

DRUGS (4)
  1. TOPAMAX [Suspect]
     Indication: CONVULSION
     Route: 064
  2. TOPAMAX [Suspect]
     Indication: CONVULSION
     Route: 064
  3. VITAMIN K [Concomitant]
     Route: 064
  4. PRENATAL VITAMINS [Concomitant]
     Route: 064

REACTIONS (10)
  - Pulmonary valve stenosis congenital [Recovering/Resolving]
  - Eustachian tube dysfunction [Recovering/Resolving]
  - Velopharyngeal incompetence [Recovering/Resolving]
  - Cleft lip and palate [Recovering/Resolving]
  - Foetal exposure during pregnancy [Unknown]
  - Atrial septal defect [Recovered/Resolved]
  - Jaundice neonatal [Unknown]
  - Patent ductus arteriosus [Unknown]
  - Otitis media chronic [Not Recovered/Not Resolved]
  - Cardiac murmur [Recovered/Resolved]
